FAERS Safety Report 4578496-4 (Version None)
Quarter: 2005Q1

REPORT INFORMATION
  Report Type: 
  Country: None (occurrence: None)
  Receive Date: 20050202
  Receipt Date: 20050202
  Transmission Date: 20050727
  Serious: Yes (Hospitalization)
  Sender: FDA-Public Use
  Company Number: None

PATIENT
  Age: 67 Year
  Sex: Female
  Weight: 99 kg

DRUGS (1)
  1. GEMCITABINE           (ARMA) [Suspect]
     Indication: PANCREATIC CARCINOMA
     Dosage: 2086 MG
     Dates: start: 20050113

REACTIONS (4)
  - DYSPNOEA [None]
  - RESPIRATORY DISTRESS [None]
  - SEPTIC SHOCK [None]
  - TACHYCARDIA [None]
